FAERS Safety Report 22605922 (Version 1)
Quarter: 2023Q2

REPORT INFORMATION
  Report Type: Spontaneous
  Country: AU (occurrence: AU)
  Receive Date: 20230615
  Receipt Date: 20230615
  Transmission Date: 20230721
  Serious: Yes (Hospitalization)
  Sender: FDA-Public Use
  Company Number: AU-ABBVIE-5291905

PATIENT
  Sex: Female

DRUGS (2)
  1. BOTOX [Suspect]
     Active Substance: ONABOTULINUMTOXINA
     Indication: Product used for unknown indication
     Dosage: TIME INTERVAL: AS NECESSARY
     Route: 065
     Dates: start: 20220822, end: 20220822
  2. DYSPORT [Suspect]
     Active Substance: ABOBOTULINUMTOXINA
     Indication: Skin wrinkling
     Dosage: LOW DOSE
     Route: 065
     Dates: start: 20230327

REACTIONS (7)
  - Tinnitus [Unknown]
  - Nausea [Unknown]
  - Headache [Unknown]
  - Mass [Unknown]
  - Illness [Unknown]
  - Influenza like illness [Unknown]
  - Dizziness [Unknown]
